FAERS Safety Report 5318466-1 (Version None)
Quarter: 2007Q2

REPORT INFORMATION
  Report Type: 
  Country: None (occurrence: None)
  Receive Date: 20070501
  Receipt Date: 20070424
  Transmission Date: 20071010
  Serious: Yes (Disabling)
  Sender: FDA-Public Use
  Company Number: 42137

PATIENT
  Age: 53 Year
  Sex: Female

DRUGS (2)
  1. TRIAMCINOLONE ACETONIDE [Suspect]
     Indication: NECROTISING RETINITIS
     Dosage: 4 MG/0.1 ML/1 INJECTION/INTRAVITREAL
  2. MACULAR GRID LASER TREATMENT [Concomitant]

REACTIONS (2)
  - DISEASE PROGRESSION [None]
  - NECROTISING RETINITIS [None]
